FAERS Safety Report 8789279 (Version 1)
Quarter: 2012Q4

REPORT INFORMATION
  Report Type: Spontaneous
  Country: US (occurrence: None)
  Receive Date: 20120904
  Receipt Date: 20120904
  Transmission Date: 20130627
  Serious: Yes (Hospitalization)
  Sender: FDA-Public Use
  Company Number: DSA_59160_2012

PATIENT
  Sex: Female

DRUGS (12)
  1. XENAZINE [Suspect]
     Indication: HUNTINGTON^S DISEASE
     Route: 048
  2. XENAZINE [Suspect]
     Indication: HUNTINGTON^S DISEASE
     Route: 048
  3. XENAZINE [Suspect]
     Indication: HUNTINGTON^S DISEASE
     Route: 048
  4. XENAZINE [Suspect]
     Indication: HUNTINGTON^S DISEASE
     Route: 048
     Dates: end: 2012
  5. ADVAIR [Concomitant]
  6. SINGULAIR [Concomitant]
  7. FLONASE [Concomitant]
  8. ZYRTEC [Concomitant]
  9. COENZYME Q10 [Concomitant]
  10. VITAMIN D [Concomitant]
  11. VITAMIN B12 [Suspect]
  12. ALBUTEROL [Concomitant]

REACTIONS (2)
  - Insomnia [None]
  - Somnolence [None]
